FAERS Safety Report 7146569-8 (Version None)
Quarter: 2010Q4

REPORT INFORMATION
  Report Type: 
  Country: None (occurrence: None)
  Receive Date: 20101208
  Receipt Date: 20101129
  Transmission Date: 20110411
  Serious: Yes (Hospitalization, Other)
  Sender: FDA-Public Use
  Company Number: CA-ABBOTT-10P-028-0679608-00

PATIENT
  Age: 12 Year
  Sex: Male
  Weight: 23.5 kg

DRUGS (5)
  1. DEPAKENE [Suspect]
     Indication: CONVULSION
     Route: 048
     Dates: start: 20021001, end: 20100119
  2. ADVIL [Interacting]
     Indication: JOINT SWELLING
     Route: 048
     Dates: start: 20100103, end: 20100117
  3. ADVIL [Interacting]
     Indication: ARTHRALGIA
  4. CARBAMAZEPINE [Concomitant]
     Indication: PRODUCT USED FOR UNKNOWN INDICATION
     Route: 048
     Dates: start: 20041001
  5. LEVETIRACETAM [Concomitant]
     Indication: PRODUCT USED FOR UNKNOWN INDICATION
     Dosage: 375 MG MORNING , 500 MG EVENING
     Route: 048
     Dates: start: 20090101

REACTIONS (8)
  - DRUG INTERACTION [None]
  - ECCHYMOSIS [None]
  - GINGIVAL BLEEDING [None]
  - JOINT SWELLING [None]
  - NORMOCHROMIC NORMOCYTIC ANAEMIA [None]
  - PETECHIAE [None]
  - PLATELET DISORDER [None]
  - UPPER RESPIRATORY TRACT INFECTION [None]
